FAERS Safety Report 13434510 (Version 1)
Quarter: 2017Q2

REPORT INFORMATION
  Report Type: Report from Study
  Country: None (occurrence: VE)
  Receive Date: 20170413
  Receipt Date: 20170413
  Transmission Date: 20170830
  Serious: Yes (Death)
  Sender: FDA-Public Use
  Company Number: VE-ABBVIE-17P-178-1940941-00

PATIENT
  Age: 61 Year
  Sex: Female

DRUGS (1)
  1. ZEMPLAR [Suspect]
     Active Substance: PARICALCITOL
     Indication: RENAL DISORDER
     Route: 042
     Dates: start: 20160707, end: 20161119

REACTIONS (1)
  - Device related sepsis [Fatal]

NARRATIVE: CASE EVENT DATE: 20161122
